FAERS Safety Report 4761996-1 (Version None)
Quarter: 2005Q3

REPORT INFORMATION
  Report Type: 
  Country: None (occurrence: None)
  Receive Date: 20050831
  Receipt Date: 20050510
  Transmission Date: 20060218
  Serious: No
  Sender: FDA-Public Use
  Company Number: PHEH2005US04369

PATIENT
  Age: 55 Year
  Sex: Female
  Weight: 61.7 kg

DRUGS (7)
  1. ENABLEX [Suspect]
     Indication: HYPERTONIC BLADDER
     Dosage: 7.5 MG, QD
     Dates: start: 20050308, end: 20050412
  2. ENABLEX [Suspect]
     Indication: HYPERTONIC BLADDER
     Dosage: 7.5 MG, QD
     Dates: start: 20050413
  3. CELEXA [Concomitant]
  4. PREMARIN [Concomitant]
  5. FOSAMAX [Concomitant]
  6. CALCIUM (CALCIUM) [Concomitant]
  7. PROGESTERONE [Concomitant]

REACTIONS (2)
  - CHEST PAIN [None]
  - PAIN IN EXTREMITY [None]
